FAERS Safety Report 11497340 (Version 1)
Quarter: 2015Q3

REPORT INFORMATION
  Report Type: Spontaneous
  Country: US (occurrence: US)
  Receive Date: 20150911
  Receipt Date: 20150911
  Transmission Date: 20151125
  Serious: Yes (Other)
  Sender: FDA-Public Use
  Company Number: US-ASTRAZENECA-2015SE86287

PATIENT
  Sex: Female

DRUGS (1)
  1. ENTOCORT EC [Suspect]
     Active Substance: BUDESONIDE
     Route: 048

REACTIONS (6)
  - Drug hypersensitivity [Unknown]
  - Crohn^s disease [Unknown]
  - Anaemia [Unknown]
  - Adverse event [Unknown]
  - Autoimmune thyroiditis [Unknown]
  - Thyroid disorder [Unknown]
